FAERS Safety Report 19580623 (Version 3)
Quarter: 2021Q3

REPORT INFORMATION
  Report Type: Report from Study
  Country: US (occurrence: US)
  Receive Date: 20210720
  Receipt Date: 20210927
  Transmission Date: 20211014
  Serious: No
  Sender: FDA-Public Use
  Company Number: NVSC2021US158433

PATIENT
  Sex: Female

DRUGS (2)
  1. KISQALI [Suspect]
     Active Substance: RIBOCICLIB
     Route: 048
  2. KISQALI [Suspect]
     Active Substance: RIBOCICLIB
     Indication: PRODUCT USED FOR UNKNOWN INDICATION
     Dosage: 1 CYCLICAL ON HER 2ND WEEK
     Route: 048

REACTIONS (9)
  - Neutrophil count decreased [Unknown]
  - Fatigue [Unknown]
  - Vomiting [Unknown]
  - Photosensitivity reaction [Unknown]
  - White blood cell count decreased [Unknown]
  - Rash pruritic [Unknown]
  - Intentional product use issue [Unknown]
  - Insomnia [Unknown]
  - Rash [Unknown]
